FAERS Safety Report 4342221-2 (Version None)
Quarter: 2004Q1

REPORT INFORMATION
  Report Type: 
  Country: None (occurrence: None)
  Receive Date: 20040329
  Receipt Date: 20040112
  Transmission Date: 20041129
  Serious: No
  Sender: FDA-Public Use
  Company Number: USA031152125

PATIENT
  Age: 55 Year
  Sex: Male
  Weight: 61 kg

DRUGS (4)
  1. STRATTERA [Suspect]
     Indication: ATTENTION DEFICIT/HYPERACTIVITY DISORDER
     Dosage: 80 MG/DAY
     Dates: start: 20030901, end: 20031201
  2. INDERAL [Concomitant]
  3. ZESTRIL [Concomitant]
  4. LIPITOR [Concomitant]

REACTIONS (3)
  - DECREASED APPETITE [None]
  - EJACULATION DISORDER [None]
  - URINARY TRACT DISORDER [None]
